FAERS Safety Report 21161476 (Version 1)
Quarter: 2022Q3

REPORT INFORMATION
  Report Type: Report from Study
  Country: FR (occurrence: FR)
  Receive Date: 20220802
  Receipt Date: 20220802
  Transmission Date: 20221027
  Serious: Yes (Hospitalization)
  Sender: FDA-Public Use
  Company Number: FR-SERVIER-S21009120

PATIENT

DRUGS (8)
  1. PEGASPARGASE [Suspect]
     Active Substance: PEGASPARGASE
     Indication: Acute lymphocytic leukaemia
     Dosage: 1200 IU, D15, D43
     Route: 042
     Dates: start: 20210407, end: 20210510
  2. CYCLOPHOSPHAMIDE [Suspect]
     Active Substance: CYCLOPHOSPHAMIDE
     Indication: Acute lymphocytic leukaemia
     Dosage: 480 MG, D1, D29
     Route: 042
     Dates: start: 20210324, end: 20210426
  3. VINCRISTINE [Suspect]
     Active Substance: VINCRISTINE
     Indication: Acute lymphocytic leukaemia
     Dosage: 0.7 MG, D15, D22, D43, D50
     Route: 042
     Dates: start: 20210407, end: 20210517
  4. CYTARABINE [Suspect]
     Active Substance: CYTARABINE
     Indication: Acute lymphocytic leukaemia
     Dosage: 36 MG, D3-6, 10-13, 31-34, 38
     Route: 042
     Dates: start: 20210326, end: 20210508
  5. CYTARABINE [Suspect]
     Active Substance: CYTARABINE
     Dosage: 20 MG, D3, D31
     Route: 037
     Dates: start: 20210326, end: 20210428
  6. MERCAPTOPURINE [Suspect]
     Active Substance: MERCAPTOPURINE
     Indication: Acute lymphocytic leukaemia
     Dosage: 29 MG, D1-14, 29-42
     Route: 048
     Dates: start: 20210324, end: 20210509
  7. METHOTREXATE [Suspect]
     Active Substance: METHOTREXATE
     Indication: Acute lymphocytic leukaemia
     Dosage: 8 MG, D3, D31
     Route: 037
     Dates: start: 20210326, end: 20210428
  8. HYDROCORTISONE [Suspect]
     Active Substance: HYDROCORTISONE
     Indication: Acute lymphocytic leukaemia
     Dosage: 10 MG, D3, D31
     Route: 037
     Dates: start: 20210326, end: 20210428

REACTIONS (1)
  - Sepsis [Recovered/Resolved]

NARRATIVE: CASE EVENT DATE: 20210611
